FAERS Safety Report 6592213-8 (Version None)
Quarter: 2010Q1

REPORT INFORMATION
  Report Type: 
  Country: None (occurrence: None)
  Receive Date: 20100221
  Receipt Date: 20091112
  Transmission Date: 20100710
  Serious: No
  Sender: FDA-Public Use
  Company Number: US-ALLERGAN-0912718US

PATIENT
  Age: 52 Year
  Sex: Male

DRUGS (10)
  1. BOTOX [Suspect]
     Indication: MIGRAINE
     Dosage: 300 UNITS, SINGLE
     Route: 030
     Dates: start: 20090831, end: 20090831
  2. BOTOX [Suspect]
  3. AGGRENOX [Concomitant]
     Dosage: 1 MG, BID
     Route: 048
  4. TRILEPTAL [Concomitant]
  5. CYMBALTA [Concomitant]
  6. VERAPAMIL [Concomitant]
  7. FOLATE [Concomitant]
  8. DOXEPIN HCL [Concomitant]
  9. PRILOSEC OTC [Concomitant]
  10. MARINOL [Concomitant]
     Dosage: 10 MG, UNK

REACTIONS (1)
  - MUSCULAR WEAKNESS [None]
